FAERS Safety Report 16620160 (Version 1)
Quarter: 2019Q3

REPORT INFORMATION
  Report Type: Spontaneous
  Country: US (occurrence: US)
  Receive Date: 20190723
  Receipt Date: 20190723
  Transmission Date: 20191004
  Serious: No
  Sender: FDA-Public Use
  Company Number: US-OTSUKA-2019_020686

PATIENT
  Sex: Female

DRUGS (1)
  1. REXULTI [Suspect]
     Active Substance: BREXPIPRAZOLE
     Indication: PRODUCT USED FOR UNKNOWN INDICATION
     Dosage: THE DOSE WAS LESS THAN OR EQUAL TO 1MG
     Route: 065

REACTIONS (3)
  - Food craving [Unknown]
  - Weight increased [Unknown]
  - Lack of satiety [Unknown]
